FAERS Safety Report 9906565 (Version 1)
Quarter: 2014Q1

REPORT INFORMATION
  Report Type: Report from Study
  Country: US (occurrence: US)
  Receive Date: 20140218
  Receipt Date: 20140218
  Transmission Date: 20141002
  Serious: No
  Sender: FDA-Public Use
  Company Number: US-B.I. PHARMACEUTICALS,INC./RIDGEFIELD-2014-BI-05733BI

PATIENT
  Age: 6 Decade
  Sex: Female

DRUGS (2)
  1. COMBIVENT [Suspect]
     Indication: CHRONIC OBSTRUCTIVE PULMONARY DISEASE
     Dosage: FORMULATION IS MDI (METERED DOSE INHALER)
  2. COMBIVENT [Suspect]

REACTIONS (2)
  - Drug ineffective [Unknown]
  - Drug ineffective [Unknown]
